FAERS Safety Report 16007080 (Version 2)
Quarter: 2021Q1

REPORT INFORMATION
  Report Type: Spontaneous
  Country: US (occurrence: US)
  Receive Date: 20190226
  Receipt Date: 20210106
  Transmission Date: 20210419
  Serious: Yes (Other)
  Sender: FDA-Public Use
  Company Number: PHEH2019US008680

PATIENT
  Sex: Male

DRUGS (1)
  1. TASIGNA [Suspect]
     Active Substance: NILOTINIB
     Indication: CHRONIC MYELOID LEUKAEMIA
     Dosage: 200 MG, BID
     Route: 048
     Dates: start: 20140624, end: 2017

REACTIONS (16)
  - Cerebral artery occlusion [Unknown]
  - Infection [Unknown]
  - Major depression [Unknown]
  - Large intestine polyp [Unknown]
  - Rash [Unknown]
  - Hyperlipidaemia [Unknown]
  - Cerebrovascular accident [Unknown]
  - Pain [Unknown]
  - Emotional distress [Unknown]
  - Sinus node dysfunction [Unknown]
  - Syncope [Unknown]
  - Anxiety [Unknown]
  - Post-traumatic stress disorder [Unknown]
  - Sleep apnoea syndrome [Unknown]
  - Generalised anxiety disorder [Unknown]
  - Visual impairment [Unknown]
